FAERS Safety Report 6178226-9 (Version None)
Quarter: 2009Q2

REPORT INFORMATION
  Report Type: 
  Country: None (occurrence: None)
  Receive Date: 20090504
  Receipt Date: 20090424
  Transmission Date: 20091009
  Serious: Yes (Hospitalization)
  Sender: FDA-Public Use
  Company Number: A0691716A

PATIENT
  Age: 56 Year
  Sex: Male

DRUGS (5)
  1. PAXIL [Suspect]
     Indication: POST-TRAUMATIC STRESS DISORDER
     Dosage: 60MG PER DAY
     Route: 048
     Dates: start: 20030101
  2. WELLBUTRIN [Suspect]
     Indication: ADVERSE DRUG REACTION
     Route: 048
     Dates: start: 20030101
  3. PAXIL [Suspect]
     Indication: DRUG USE FOR UNKNOWN INDICATION
     Dosage: 30MG UNKNOWN
  4. HEART MEDICATION [Concomitant]
  5. CONCURRENT MEDICATIONS [Concomitant]

REACTIONS (7)
  - BLOOD POTASSIUM DECREASED [None]
  - DEPRESSED MOOD [None]
  - DRUG INEFFECTIVE [None]
  - FATIGUE [None]
  - FOOD CRAVING [None]
  - GLOSSODYNIA [None]
  - STAPHYLOCOCCAL INFECTION [None]
